FAERS Safety Report 8430670-2 (Version None)
Quarter: 2012Q2

REPORT INFORMATION
  Report Type: 
  Country: None (occurrence: None)
  Receive Date: 20120323
  Receipt Date: 20110606
  Transmission Date: 20120825
  Serious: Yes (Other)
  Sender: FDA-Public Use
  Company Number: 163-21880-11060927

PATIENT
  Age: 90 Year
  Sex: Female
  Weight: 55.7924 kg

DRUGS (15)
  1. COREG [Concomitant]
  2. REVLIMID [Suspect]
     Indication: MULTIPLE MYELOMA
     Dosage: 25 MG, 1 IN 1 D, PO
     Route: 048
     Dates: start: 20110514
  3. PEPCID [Concomitant]
  4. GLUCOSAMINE [Concomitant]
  5. VITAMIN D [Concomitant]
  6. ASPIRIN [Concomitant]
  7. TOLTERODINE TARTRATE [Concomitant]
  8. ATACAND [Concomitant]
  9. M.V.I. [Concomitant]
  10. VISION VIT [Concomitant]
  11. DEXAMETHASONE [Concomitant]
  12. PLAVIX [Concomitant]
  13. IMDUR [Concomitant]
  14. LASIX [Concomitant]
  15. PRAVACHOL [Concomitant]

REACTIONS (2)
  - FULL BLOOD COUNT DECREASED [None]
  - MUSCLE SPASMS [None]
